FAERS Safety Report 7810764-2 (Version None)
Quarter: 2011Q4

REPORT INFORMATION
  Report Type: 
  Country: None (occurrence: None)
  Receive Date: 20111011
  Receipt Date: 20110922
  Transmission Date: 20120403
  Serious: Yes (Life-Threatening)
  Sender: FDA-Public Use
  Company Number: TPA2011A05444

PATIENT
  Age: 73 Year
  Sex: Female

DRUGS (11)
  1. ASPIRIN [Concomitant]
  2. LOSARTAN POTASSIUM [Concomitant]
  3. VIT K CAP [Concomitant]
  4. FEBURIC (FEUXOSTAT) [Suspect]
     Indication: HYPERURICAEMIA
     Dosage: 10 MG (10 MG,1 IN 1 D) PER ORAL
     Route: 048
     Dates: start: 20110621, end: 20110726
  5. LASIX [Concomitant]
  6. AMLODIPINE BESYLATE [Concomitant]
  7. LANSOPRAZOLE [Concomitant]
  8. CORTRIL [Concomitant]
  9. HALCION [Concomitant]
  10. CEFTRIAXONE SODIUM [Suspect]
     Indication: CELLULITIS
     Dosage: INTRAMUSCULAR
     Route: 030
     Dates: start: 20110709, end: 20110722
  11. MIKELAN (CARTEOLOL HYDROCHLORIDE) [Concomitant]

REACTIONS (3)
  - ALTERED STATE OF CONSCIOUSNESS [None]
  - PYREXIA [None]
  - AGRANULOCYTOSIS [None]
